FAERS Safety Report 24671828 (Version 1)
Quarter: 2024Q4

REPORT INFORMATION
  Report Type: Report from Study
  Country: US (occurrence: US)
  Receive Date: 20241127
  Receipt Date: 20241127
  Transmission Date: 20250115
  Serious: Yes (Hospitalization)
  Sender: EISAI
  Company Number: US-Eisai-EC-2024-179652

PATIENT
  Age: 69 Year
  Sex: Female

DRUGS (3)
  1. LENVIMA [Suspect]
     Active Substance: LENVATINIB
     Indication: Endometrial cancer
     Route: 048
     Dates: start: 20240827, end: 20241002
  2. LENVIMA [Suspect]
     Active Substance: LENVATINIB
     Route: 048
     Dates: start: 20241003, end: 20241111
  3. KEYTRUDA [Concomitant]
     Active Substance: PEMBROLIZUMAB
     Indication: Endometrial cancer
     Dosage: DOSAGE AND FREQUENCY UNKNOWN
     Route: 042

REACTIONS (2)
  - Hypertension [Recovered/Resolved]
  - Thunderclap headache [Recovered/Resolved]

NARRATIVE: CASE EVENT DATE: 20241111
